FAERS Safety Report 9113203 (Version 1)
Quarter: 2013Q1

REPORT INFORMATION
  Report Type: Spontaneous
  Country: GB (occurrence: GB)
  Receive Date: 20130211
  Receipt Date: 20130211
  Transmission Date: 20140127
  Serious: Yes (Hospitalization)
  Sender: FDA-Public Use
  Company Number: GB-TEVA-384343ISR

PATIENT
  Age: 67 Year
  Sex: Female

DRUGS (7)
  1. METFORMIN [Suspect]
     Dosage: 500 MG, BID
  2. LEVEMIR [Suspect]
     Indication: TYPE 1 DIABETES MELLITUS
     Dosage: UNK
     Route: 065
     Dates: start: 200510
  3. LEVEMIR [Suspect]
     Dosage: 5 UNITS IN THE MORNING AND 22 (SINCE HOSPITAL DISCHARGE)
     Route: 065
  4. NOVORAPID [Suspect]
     Indication: TYPE 1 DIABETES MELLITUS
     Dosage: DOSE DEPENDING ON DIET
     Route: 065
     Dates: start: 200503
  5. SIMVASTATIN [Concomitant]
  6. INDAPAMIDE [Concomitant]
  7. LETROZOLE [Concomitant]
     Indication: BREAST CANCER

REACTIONS (4)
  - Ketoacidosis [Recovered/Resolved]
  - Loss of consciousness [Recovered/Resolved]
  - Hypoglycaemia [Recovered/Resolved]
  - Device difficult to use [Unknown]
